FAERS Safety Report 16397388 (Version 1)
Quarter: 2019Q2

REPORT INFORMATION
  Report Type: Spontaneous
  Country: US (occurrence: US)
  Receive Date: 20190430
  Receipt Date: 20190430
  Transmission Date: 20190711
  Serious: No
  Sender: FDA-Public Use
  Company Number: None

PATIENT
  Age: 64 Year
  Sex: Male

DRUGS (1)
  1. PROGRAF [Suspect]
     Active Substance: TACROLIMUS\TACROLIMUS ANHYDROUS
     Indication: LIVER TRANSPLANT
     Dates: start: 201802

REACTIONS (4)
  - Osteogenesis imperfecta [None]
  - Pruritus [None]
  - Tooth loss [None]
  - Product dose omission [None]

NARRATIVE: CASE EVENT DATE: 20190430
